FAERS Safety Report 5954626-4 (Version None)
Quarter: 2008Q4

REPORT INFORMATION
  Report Type: 
  Country: None (occurrence: None)
  Receive Date: 20081117
  Receipt Date: 20081107
  Transmission Date: 20090506
  Serious: Yes (Hospitalization)
  Sender: FDA-Public Use
  Company Number: US-AMGEN-US318619

PATIENT

DRUGS (1)
  1. PROCRIT [Suspect]
     Indication: DRUG USE FOR UNKNOWN INDICATION
     Route: 058
     Dates: start: 20081101

REACTIONS (4)
  - BLOOD CREATININE INCREASED [None]
  - HAEMOGLOBIN INCREASED [None]
  - MULTI-ORGAN FAILURE [None]
  - RENAL FAILURE [None]
